FAERS Safety Report 6900978-8 (Version None)
Quarter: 2010Q3

REPORT INFORMATION
  Report Type: 
  Country: None (occurrence: None)
  Receive Date: 20100803
  Receipt Date: 20100727
  Transmission Date: 20110219
  Serious: Yes (Hospitalization)
  Sender: FDA-Public Use
  Company Number: B0657451A

PATIENT
  Sex: Male
  Weight: 91 kg

DRUGS (6)
  1. ARIXTRA [Suspect]
     Indication: THROMBOSIS PROPHYLAXIS
     Dosage: 2.5MG PER DAY
     Route: 058
     Dates: start: 20090605, end: 20090615
  2. BIPROFENID [Suspect]
     Dosage: 150MG TWICE PER DAY
     Route: 048
     Dates: start: 20090605, end: 20090808
  3. CELEBREX [Concomitant]
     Dosage: 200MG TWICE PER DAY
     Route: 048
     Dates: start: 20090609
  4. ACETAMINOPHEN [Concomitant]
     Indication: PAIN
     Dosage: 4G PER DAY
     Route: 048
     Dates: start: 20090609
  5. TOPALGIC (FRANCE) [Concomitant]
     Route: 048
     Dates: start: 20090609
  6. LOVENOX [Concomitant]
     Indication: THROMBOSIS PROPHYLAXIS
     Dosage: 4000IUAX PER DAY
     Route: 058
     Dates: start: 20090602, end: 20090604

REACTIONS (2)
  - HAEMARTHROSIS [None]
  - PYREXIA [None]
